FAERS Safety Report 4511018-2 (Version None)
Quarter: 2004Q4

REPORT INFORMATION
  Report Type: 
  Country: None (occurrence: None)
  Receive Date: 20041018
  Receipt Date: 20040810
  Transmission Date: 20050328
  Serious: No
  Sender: FDA-Public Use
  Company Number: 208354

PATIENT
  Age: 74 Year
  Sex: Female
  Weight: 81.8 kg

DRUGS (5)
  1. XOLAIR [Suspect]
     Indication: ASTHMA
     Dosage: 375, Q2W, SUBCUTANEOUS
     Route: 058
     Dates: start: 20040409, end: 20040716
  2. FLONASE [Concomitant]
  3. ADVAIR (SALMETEROL XINAFOATE, FLUTICASONE PROPIONATE) [Concomitant]
  4. ALLEGRA [Concomitant]
  5. XOPENEX [Concomitant]

REACTIONS (1)
  - PAIN IN EXTREMITY [None]
